FAERS Safety Report 7155659 (Version 6)
Quarter: 2017Q2

REPORT INFORMATION
  Report Type: Spontaneous
  Country: US (occurrence: US)
  Receive Date: 20091022
  Receipt Date: 20170407
  Transmission Date: 20170830
  Serious: Yes (Life-Threatening, Hospitalization)
  Sender: FDA-Public Use
  Company Number: US-JNJFOC-20091005122

PATIENT
  Age: 33 Year
  Sex: Female
  Weight: 88.45 kg

DRUGS (1)
  1. ORTHO EVRA [Suspect]
     Active Substance: ETHINYL ESTRADIOL\NORELGESTROMIN
     Indication: CONTRACEPTION
     Route: 062

REACTIONS (9)
  - Product quality issue [Unknown]
  - Menorrhagia [Unknown]
  - Vaginal discharge [Unknown]
  - Heart rate increased [Unknown]
  - Drug ineffective [Unknown]
  - Migraine [Unknown]
  - Hypertension [Unknown]
  - Syncope [None]
  - Pulmonary embolism [Unknown]

NARRATIVE: CASE EVENT DATE: 20080801
